FAERS Safety Report 20235888 (Version 1)
Quarter: 2021Q4

REPORT INFORMATION
  Report Type: Report from Study
  Country: DE (occurrence: DE)
  Receive Date: 20211228
  Receipt Date: 20211228
  Transmission Date: 20220304
  Serious: Yes (Death, Hospitalization)
  Sender: FDA-Public Use
  Company Number: DE-JNJFOC-20211220953

PATIENT
  Age: 8 Decade
  Sex: Female

DRUGS (20)
  1. DARATUMUMAB [Suspect]
     Active Substance: DARATUMUMAB
     Indication: Plasma cell myeloma
     Route: 042
     Dates: start: 20191219, end: 20210923
  2. LENALIDOMIDE [Suspect]
     Active Substance: LENALIDOMIDE
     Indication: Plasma cell myeloma
     Dosage: THE LAST DOSE WAS TAKEN ON 13-OCT-2021
     Route: 048
     Dates: start: 20191203, end: 20211028
  3. INSULIN NOS [Concomitant]
     Active Substance: INSULIN NOS
     Dosage: 38 IE
     Route: 058
  4. INSULIN NOS [Concomitant]
     Active Substance: INSULIN NOS
     Dosage: 28 IE
     Route: 058
  5. INSULIN NOS [Concomitant]
     Active Substance: INSULIN NOS
     Dosage: 20 IE
     Route: 058
  6. FOLIC ACID [Concomitant]
     Active Substance: FOLIC ACID
     Route: 048
  7. AMLODIPINE [Concomitant]
     Active Substance: AMLODIPINE BESYLATE
     Route: 048
  8. METAMIZOLE [Concomitant]
     Active Substance: METAMIZOLE
     Dosage: 40 DROPS REQUIRED
     Route: 048
  9. FENTANYL [Concomitant]
     Active Substance: FENTANYL
     Route: 061
  10. METFORMIN [Concomitant]
     Active Substance: METFORMIN HYDROCHLORIDE
     Route: 048
  11. VALSARTAN [Concomitant]
     Active Substance: VALSARTAN
     Route: 048
  12. TRIAMTERENE [Concomitant]
     Active Substance: TRIAMTERENE
     Route: 048
  13. ERGOCALCIFEROL [Concomitant]
     Active Substance: ERGOCALCIFEROL
     Route: 048
  14. HYDROCHLOROTHIAZIDE [Concomitant]
     Active Substance: HYDROCHLOROTHIAZIDE
     Route: 048
  15. SITAGLIPTIN [Concomitant]
     Active Substance: SITAGLIPTIN
     Route: 048
  16. DEXAMETHASONE [Concomitant]
     Active Substance: DEXAMETHASONE
     Route: 042
     Dates: start: 20191202
  17. ACETAMINOPHEN [Concomitant]
     Active Substance: ACETAMINOPHEN
     Route: 048
     Dates: start: 20191203
  18. CLEMASTINE [Concomitant]
     Active Substance: CLEMASTINE
     Route: 042
     Dates: start: 20191203
  19. RANITIDINE [Concomitant]
     Active Substance: RANITIDINE
     Route: 042
     Dates: start: 20191203
  20. FAMOTIDINE [Concomitant]
     Active Substance: FAMOTIDINE
     Route: 048
     Dates: start: 20200213

REACTIONS (1)
  - Hepatic cirrhosis [Fatal]

NARRATIVE: CASE EVENT DATE: 20211028
